FAERS Safety Report 7808945-7 (Version None)
Quarter: 2011Q4

REPORT INFORMATION
  Report Type: 
  Country: None (occurrence: None)
  Receive Date: 20111012
  Receipt Date: 20111005
  Transmission Date: 20120403
  Serious: Yes (Hospitalization)
  Sender: FDA-Public Use
  Company Number: CA-BRISTOL-MYERS SQUIBB COMPANY-16143752

PATIENT
  Age: 56 Year
  Sex: Female

DRUGS (2)
  1. ABILIFY [Suspect]
     Indication: SCHIZOAFFECTIVE DISORDER
     Dosage: 1 DF= TITRATED VALUES FROM 5TO 10 TO 15 THEN 20MG THEN CUT IN TO 10MG
  2. VALPROATE SODIUM [Concomitant]
     Dosage: DOSAGE: 250MG IN AM, 250MG AT NOON, 500MG AT BEDTIME

REACTIONS (4)
  - TREMOR [None]
  - AKATHISIA [None]
  - ANXIETY [None]
  - NYSTAGMUS [None]
